FAERS Safety Report 7689627-1 (Version None)
Quarter: 2011Q3

REPORT INFORMATION
  Report Type: 
  Country: None (occurrence: None)
  Receive Date: 20110817
  Receipt Date: 20110808
  Transmission Date: 20111222
  Serious: Yes (Other)
  Sender: FDA-Public Use
  Company Number: US-ASTRAZENECA-2009UW04678

PATIENT
  Age: 52 Year
  Sex: Female

DRUGS (3)
  1. PRILOSEC OTC [Suspect]
     Route: 048
  2. NEXIUM [Suspect]
     Route: 048
  3. PRILOSEC [Suspect]
     Dosage: UNKNOWN
     Route: 048

REACTIONS (3)
  - DRUG EFFECT DECREASED [None]
  - ORAL SURGERY [None]
  - LIP AND/OR ORAL CAVITY CANCER [None]
